FAERS Safety Report 24638284 (Version 1)
Quarter: 2024Q4

REPORT INFORMATION
  Report Type: Spontaneous
  Country: US (occurrence: None)
  Receive Date: 20241119
  Receipt Date: 20241119
  Transmission Date: 20250115
  Serious: Yes (Hospitalization)
  Sender: Public
  Company Number: None

PATIENT
  Age: 71 Year
  Sex: Male

DRUGS (1)
  1. EMPAGLIFLOZIN [Suspect]
     Active Substance: EMPAGLIFLOZIN
     Indication: Diabetes mellitus
     Dates: start: 20240319, end: 20241029

REACTIONS (4)
  - Sepsis [None]
  - Urinary tract infection [None]
  - Tachycardia [None]
  - Drug hypersensitivity [None]

NARRATIVE: CASE EVENT DATE: 20241017
